FAERS Safety Report 17639523 (Version 3)
Quarter: 2020Q3

REPORT INFORMATION
  Report Type: Spontaneous
  Country: US (occurrence: US)
  Receive Date: 20200407
  Receipt Date: 20200804
  Transmission Date: 20201102
  Serious: Yes (Other)
  Sender: FDA-Public Use
  Company Number: US-009507513-2003USA011071

PATIENT
  Sex: Female

DRUGS (13)
  1. ASPIRIN. [Concomitant]
     Active Substance: ASPIRIN
  2. CETROTIDE [Concomitant]
     Active Substance: CETRORELIX ACETATE
  3. GANIRELIX ACETATE INJECTION [Suspect]
     Active Substance: GANIRELIX ACETATE
     Indication: INFERTILITY FEMALE
     Dosage: 250 MICROGRAM, QD AS DIRECTED
     Route: 058
     Dates: start: 20191015
  4. LEUPROLIDE [Concomitant]
     Active Substance: LEUPROLIDE
  5. MENOPUR [Concomitant]
     Active Substance: FOLLITROPIN\LUTEINIZING HORMONE
  6. CRINONE [Concomitant]
     Active Substance: PROGESTERONE
  7. ENDOMETRIN [Concomitant]
     Active Substance: PROGESTERONE
  8. PROGESTERONE. [Concomitant]
     Active Substance: PROGESTERONE
  9. FOLLISTIM [Suspect]
     Active Substance: FOLLITROPIN
     Indication: INFERTILITY FEMALE
     Dosage: 300 INTERNATIONAL UNIT DAILY FOR 12 DAYS
     Route: 058
     Dates: start: 20191016
  10. ESTRADIOL. [Concomitant]
     Active Substance: ESTRADIOL
  11. PREDNISONE. [Concomitant]
     Active Substance: PREDNISONE
  12. PREGNYL [Suspect]
     Active Substance: CHORIOGONADOTROPIN ALFA
     Indication: INFERTILITY FEMALE
     Dosage: STREGTH 10000 UNIT; 1 MILLILITER, DAILY
     Route: 030
     Dates: start: 20191114
  13. MINIVELLE [Concomitant]
     Active Substance: ESTRADIOL

REACTIONS (2)
  - Immune system disorder [Unknown]
  - Abortion spontaneous [Unknown]

NARRATIVE: CASE EVENT DATE: 2019
